FAERS Safety Report 8058343-9 (Version None)
Quarter: 2012Q1

REPORT INFORMATION
  Report Type: 
  Country: None (occurrence: None)
  Receive Date: 20120120
  Receipt Date: 20120110
  Transmission Date: 20120608
  Serious: Yes (Hospitalization)
  Sender: FDA-Public Use
  Company Number: FR-ELI_LILLY_AND_COMPANY-FR201201002774

PATIENT
  Sex: Female

DRUGS (10)
  1. ACETAMINOPHEN [Concomitant]
  2. SPIRIVA [Concomitant]
  3. ALLOPURINOL [Concomitant]
  4. OMEPRAZOLE [Concomitant]
  5. IRBESARTAN [Concomitant]
     Route: 048
  6. LASIX [Concomitant]
     Route: 048
  7. FORADIL [Concomitant]
  8. FERROUS SULFATE TAB [Concomitant]
  9. CYMBALTA [Suspect]
     Dosage: UNK
     Route: 048
     Dates: start: 20110707
  10. ASPIRIN [Concomitant]
     Route: 048

REACTIONS (10)
  - TACHYARRHYTHMIA [None]
  - HYPOTENSION [None]
  - HYPERTENSION [None]
  - BLADDER DILATATION [None]
  - MUSCLE CONTRACTURE [None]
  - TREMOR [None]
  - HALLUCINATION [None]
  - CONFUSIONAL STATE [None]
  - DEPRESSED MOOD [None]
  - COGNITIVE DISORDER [None]
